FAERS Safety Report 10484214 (Version 1)
Quarter: 2014Q3

REPORT INFORMATION
  Report Type: Spontaneous
  Country: JP (occurrence: JP)
  Receive Date: 20140930
  Receipt Date: 20140930
  Transmission Date: 20150326
  Serious: Yes (Other)
  Sender: FDA-Public Use
  Company Number: PHHY2014JP126211

PATIENT
  Age: 48 Year
  Sex: Male

DRUGS (4)
  1. CICLOSPORIN [Suspect]
     Active Substance: CYCLOSPORINE
     Indication: CORD BLOOD TRANSPLANT THERAPY
     Route: 048
  2. CYTARABINE. [Concomitant]
     Active Substance: CYTARABINE
  3. METHOTREXATE [Suspect]
     Active Substance: METHOTREXATE
     Indication: CORD BLOOD TRANSPLANT THERAPY
     Dosage: UNK
  4. CYCLOPHOSPHAMIDE. [Concomitant]
     Active Substance: CYCLOPHOSPHAMIDE

REACTIONS (3)
  - Graft versus host disease [Unknown]
  - Thrombotic microangiopathy [Unknown]
  - Nephropathy [Unknown]
